FAERS Safety Report 23670283 (Version 1)
Quarter: 2024Q1

REPORT INFORMATION
  Report Type: Report from Study
  Country: TW (occurrence: TW)
  Receive Date: 20240325
  Receipt Date: 20240325
  Transmission Date: 20240410
  Serious: Yes (Death, Other)
  Sender: FDA-Public Use
  Company Number: TW-BoehringerIngelheim-2024-BI-017125

PATIENT
  Age: 60 Year
  Sex: Female

DRUGS (2)
  1. AFATINIB [Suspect]
     Active Substance: AFATINIB
     Indication: EGFR gene mutation
  2. AFATINIB [Suspect]
     Active Substance: AFATINIB
     Indication: Non-small cell lung cancer

REACTIONS (3)
  - Death [Fatal]
  - Malignant neoplasm progression [Unknown]
  - Acquired gene mutation [Unknown]
